FAERS Safety Report 13505264 (Version 1)
Quarter: 2017Q2

REPORT INFORMATION
  Report Type: Spontaneous
  Country: US (occurrence: US)
  Receive Date: 20170502
  Receipt Date: 20170502
  Transmission Date: 20170830
  Serious: Yes (Other)
  Sender: FDA-Public Use
  Company Number: US-ALLERGAN-1716876US

PATIENT
  Age: 44 Year
  Sex: Female

DRUGS (13)
  1. COMBIGAN [Suspect]
     Active Substance: BRIMONIDINE TARTRATE\TIMOLOL MALEATE
     Indication: ANGLE CLOSURE GLAUCOMA
     Dosage: 1 GTT, BID
     Route: 047
     Dates: start: 201512
  2. ACETAZOLAMIDE. [Concomitant]
     Active Substance: ACETAZOLAMIDE
     Indication: GLAUCOMA
     Dosage: 125 MG, QID
     Route: 065
  3. PROMETHAZINE [Concomitant]
     Active Substance: PROMETHAZINE\PROMETHAZINE HYDROCHLORIDE
     Indication: PRODUCT USED FOR UNKNOWN INDICATION
     Dosage: 25 MG, PRN
     Route: 065
  4. COMBIGAN [Suspect]
     Active Substance: BRIMONIDINE TARTRATE\TIMOLOL MALEATE
     Indication: GLAUCOMA
  5. LUMIGAN [Suspect]
     Active Substance: BIMATOPROST
     Indication: INTRAOCULAR PRESSURE INCREASED
  6. LASIX [Concomitant]
     Active Substance: FUROSEMIDE
     Indication: PRODUCT USED FOR UNKNOWN INDICATION
     Dosage: UNK
     Route: 065
  7. COMBIGAN [Suspect]
     Active Substance: BRIMONIDINE TARTRATE\TIMOLOL MALEATE
     Indication: INTRAOCULAR PRESSURE INCREASED
  8. DOXAZOCIN [Concomitant]
     Active Substance: DOXAZOSIN MESYLATE
     Indication: PRODUCT USED FOR UNKNOWN INDICATION
     Dosage: 2 MG, UNK
     Route: 065
  9. PRED FORTE [Concomitant]
     Active Substance: PREDNISOLONE ACETATE
     Indication: OCULAR DISCOMFORT
     Dosage: 1 GTT, PRN
     Route: 047
  10. LANTUS [Concomitant]
     Active Substance: INSULIN GLARGINE
     Indication: DIABETES MELLITUS
     Dosage: UNK
     Route: 065
  11. LUMIGAN [Suspect]
     Active Substance: BIMATOPROST
     Indication: ANGLE CLOSURE GLAUCOMA
     Dosage: 1 GTT, QHS
     Route: 047
     Dates: start: 201512
  12. LUMIGAN [Suspect]
     Active Substance: BIMATOPROST
     Indication: GLAUCOMA
  13. TRIAMTERENE AND HYDROCHLOROTHIAZIDE [Concomitant]
     Active Substance: HYDROCHLOROTHIAZIDE\TRIAMTERENE
     Indication: HYPERTENSION
     Dosage: UNK
     Route: 065

REACTIONS (2)
  - Intraocular pressure increased [Recovered/Resolved]
  - Visual impairment [Not Recovered/Not Resolved]

NARRATIVE: CASE EVENT DATE: 201601
